FAERS Safety Report 5587923-5 (Version None)
Quarter: 2008Q1

REPORT INFORMATION
  Report Type: 
  Country: None (occurrence: None)
  Receive Date: 20080111
  Receipt Date: 20070906
  Transmission Date: 20080703
  Serious: No
  Sender: FDA-Public Use
  Company Number: US-KINGPHARMUSA00001-K200701150

PATIENT

DRUGS (1)
  1. INTAL [Suspect]
     Dosage: UNK, UNK

REACTIONS (1)
  - DYSPNOEA [None]
